FAERS Safety Report 14622103 (Version 2)
Quarter: 2018Q1

REPORT INFORMATION
  Report Type: Report from Study
  Country: US (occurrence: US)
  Receive Date: 20180311
  Receipt Date: 20180322
  Transmission Date: 20180509
  Serious: Yes (Hospitalization)
  Sender: FDA-Public Use
  Company Number: US-BIOGEN-2010BI031237

PATIENT
  Age: 56 Year
  Sex: Male

DRUGS (2)
  1. AVONEX [Suspect]
     Active Substance: INTERFERON BETA-1A
     Route: 030
  2. AVONEX [Suspect]
     Active Substance: INTERFERON BETA-1A
     Indication: MULTIPLE SCLEROSIS
     Route: 030
     Dates: start: 20070308

REACTIONS (8)
  - Fall [Recovered/Resolved]
  - Coma [Recovered/Resolved]
  - Head injury [Recovered/Resolved]
  - Gait disturbance [Not Recovered/Not Resolved]
  - Apparent death [Recovered/Resolved]
  - Pneumonia [Recovered/Resolved]
  - Cognitive disorder [Not Recovered/Not Resolved]
  - Loss of consciousness [Not Recovered/Not Resolved]

NARRATIVE: CASE EVENT DATE: 201003
